FAERS Safety Report 23140333 (Version 3)
Quarter: 2024Q1

REPORT INFORMATION
  Report Type: Spontaneous
  Country: PL (occurrence: PL)
  Receive Date: 20231102
  Receipt Date: 20240227
  Transmission Date: 20240410
  Serious: Yes (Disabling, Other)
  Sender: FDA-Public Use
  Company Number: None

PATIENT
  Age: 55 Year
  Sex: Male

DRUGS (9)
  1. BORTEZOMIB [Suspect]
     Active Substance: BORTEZOMIB
     Indication: Plasma cell myeloma refractory
     Dosage: UNK
     Route: 065
  2. CYCLOPHOSPHAMIDE [Suspect]
     Active Substance: CYCLOPHOSPHAMIDE
     Indication: Plasma cell myeloma refractory
     Dosage: ACCORDING TO STANDARD PROTOCOL OF BORTEZOMIB, CYCLOPHOSPHAMIDE, DEXAMETHASONE, FOUR COURSES
     Route: 065
     Dates: start: 201710, end: 201802
  3. CYCLOPHOSPHAMIDE [Suspect]
     Active Substance: CYCLOPHOSPHAMIDE
     Dosage: ACCORDING TO STANDARD PROTOCOL OF BORTEZOMIB, CYCLOPHOSPHAMIDE, DEXAMETHASONE, FOUR COURSES
     Route: 065
     Dates: start: 201710, end: 201802
  4. DEXAMETHASONE [Suspect]
     Active Substance: DEXAMETHASONE
     Indication: Plasma cell myeloma refractory
     Dosage: 40 MILLIGRAM
     Route: 065
  5. IXAZOMIB [Suspect]
     Active Substance: IXAZOMIB
     Indication: Plasma cell myeloma refractory
     Dosage: 4 MILLIGRAM
     Route: 065
  6. LENALIDOMIDE [Suspect]
     Active Substance: LENALIDOMIDE
     Indication: Plasma cell myeloma refractory
     Dosage: 25 MILLIGRAM
     Route: 065
  7. THALIDOMIDE [Suspect]
     Active Substance: THALIDOMIDE
     Indication: Plasma cell myeloma
     Dosage: TWO CONSECUTIVE COURSES OF CYCLOPHOSPHAMIDE, THALIDOMIDE, DEXAMETHASONE
     Route: 065
     Dates: start: 201208
  8. VELCADE [Suspect]
     Active Substance: BORTEZOMIB
     Indication: Plasma cell myeloma refractory
     Dosage: UNK
     Route: 065
  9. MELPHALAN [Concomitant]
     Active Substance: MELPHALAN
     Indication: Bone marrow conditioning regimen
     Dosage: HIGH-DOSE
     Route: 065
     Dates: start: 201308

REACTIONS (7)
  - Polyneuropathy [Unknown]
  - Embolism arterial [Recovered/Resolved with Sequelae]
  - Limb amputation [Recovered/Resolved with Sequelae]
  - Plasma cell myeloma recurrent [Recovering/Resolving]
  - Peripheral ischaemia [Recovered/Resolved with Sequelae]
  - Respiratory tract infection [Unknown]
  - Therapy partial responder [Unknown]

NARRATIVE: CASE EVENT DATE: 20120401
